FAERS Safety Report 18945238 (Version 2)
Quarter: 2021Q1

REPORT INFORMATION
  Report Type: Spontaneous
  Country: AU (occurrence: AU)
  Receive Date: 20210226
  Receipt Date: 20210320
  Transmission Date: 20210420
  Serious: Yes (Hospitalization, Other)
  Sender: FDA-Public Use
  Company Number: AU-LUPIN PHARMACEUTICALS INC.-2021-02265

PATIENT
  Age: 62 Year
  Sex: Female

DRUGS (16)
  1. OXYCODONE [Suspect]
     Active Substance: OXYCODONE
     Indication: BACK PAIN
     Dosage: UNK, RESUMED AGAIN AFTER DISCHARGE
     Route: 065
     Dates: end: 201403
  2. BUPRENORPHINE. [Suspect]
     Active Substance: BUPRENORPHINE
     Indication: DRUG USE DISORDER
     Dosage: UNK, PATCH
     Route: 065
     Dates: start: 201410
  3. BUPRENORPHINE. [Suspect]
     Active Substance: BUPRENORPHINE
     Dosage: AT 32 AND 34 HOURS AFTER ADMISSION
     Route: 060
     Dates: start: 2017
  4. DIAZEPAM. [Suspect]
     Active Substance: DIAZEPAM
     Indication: ANXIETY
     Dosage: UNK, INITIAL DOSE UNKNOWN; DOSE ESCALATED
     Route: 065
  5. BUPRENORPHINE. [Suspect]
     Active Substance: BUPRENORPHINE
     Indication: BACK PAIN
     Dosage: UNK, DISCONTINUED IN 2014, SOON AFTER DISCHARGE
     Route: 060
     Dates: start: 201403, end: 2014
  6. KETAMINE [Concomitant]
     Active Substance: KETAMINE
     Indication: PAIN
     Dosage: DOSE: 6 MG/HR, INTRAVENOUS INFUSION
     Route: 042
     Dates: start: 201403
  7. OXYCODONE [Suspect]
     Active Substance: OXYCODONE
     Dosage: 10 MILLIGRAM, ADMINISTERED 14 HOURS AFTER ADMISSION
     Route: 065
     Dates: start: 2017
  8. METHADONE [Suspect]
     Active Substance: METHADONE HYDROCHLORIDE
     Indication: DRUG USE DISORDER
  9. KETAMINE [Concomitant]
     Active Substance: KETAMINE
     Dosage: UNK, INTRAVENOUS INFUSION
     Route: 042
     Dates: start: 201410
  10. OXYCODONE [Suspect]
     Active Substance: OXYCODONE
     Indication: DRUG USE DISORDER
     Dosage: UNK
     Route: 065
     Dates: start: 2014, end: 201403
  11. CLONIDINE. [Suspect]
     Active Substance: CLONIDINE
     Indication: PROPHYLAXIS
     Dosage: UNK, TID, DOSAGE: AS REQUIRED, THREE TIMES A DAY (TOTAL DOSE: 300?600 MCG/DAY)
     Route: 048
     Dates: start: 201403
  12. DIAZEPAM. [Suspect]
     Active Substance: DIAZEPAM
     Dosage: 10 MILLIGRAM, THREE TIMES DAILY; ON ADMISSION IN 2017
     Route: 065
     Dates: start: 2017
  13. BUPRENORPHINE. [Suspect]
     Active Substance: BUPRENORPHINE
     Dosage: AT 30 HOURS AFTER ADMISSION
     Route: 060
     Dates: start: 2017, end: 2017
  14. KETAMINE [Concomitant]
     Active Substance: KETAMINE
     Dosage: DOSE: 2MG/HR; INCREASED UP TO 24 MG/HR OVER 2 DAYS
     Route: 042
     Dates: start: 2017
  15. CLONIDINE. [Suspect]
     Active Substance: CLONIDINE
     Dosage: UNK UNK, BID, DOSAGE: TWICE A DAY (TOTAL DOSE: 100 MCG/DAY)
     Route: 048
     Dates: start: 201410
  16. METHADONE [Suspect]
     Active Substance: METHADONE HYDROCHLORIDE
     Indication: BACK PAIN
     Dosage: INITIAL DOSE UNKNOWN; DOSE ESCALATED; 40MG DOSE ADMINISTERED 2 DAYS PRIOR TO ADMISSION IN 2017
     Route: 065
     Dates: end: 2017

REACTIONS (6)
  - Stress cardiomyopathy [Recovering/Resolving]
  - Fall [Unknown]
  - Injury [Unknown]
  - Hyperaesthesia [Unknown]
  - Off label use [Unknown]
  - Drug withdrawal syndrome [Unknown]

NARRATIVE: CASE EVENT DATE: 2014
